FAERS Safety Report 18700142 (Version 1)
Quarter: 2021Q1

REPORT INFORMATION
  Report Type: Spontaneous
  Country: FR (occurrence: FR)
  Receive Date: 20210104
  Receipt Date: 20210104
  Transmission Date: 20210419
  Serious: Yes (Other)
  Sender: FDA-Public Use
  Company Number: FR-AUROBINDO-AUR-APL-2020-063992

PATIENT
  Age: 29 Year
  Sex: Female

DRUGS (2)
  1. NAPROXEN. [Suspect]
     Active Substance: NAPROXEN
     Indication: PAIN
     Dosage: 550 MILLIGRAM (1, TOTAL)
     Route: 048
     Dates: start: 20170923, end: 20170923
  2. NAPROXEN. [Suspect]
     Active Substance: NAPROXEN
     Dosage: 550 MILLIGRAM (1, TOTAL)
     Route: 048
     Dates: start: 20170930, end: 20170930

REACTIONS (1)
  - Hypersensitivity [Recovered/Resolved]

NARRATIVE: CASE EVENT DATE: 20170930
